FAERS Safety Report 9214643 (Version 2)
Quarter: 2013Q2

REPORT INFORMATION
  Report Type: Report from Study
  Country: US (occurrence: US)
  Receive Date: 20130405
  Receipt Date: 20130601
  Transmission Date: 20140414
  Serious: Yes (Death, Life-Threatening, Hospitalization)
  Sender: FDA-Public Use
  Company Number: US-ROCHE-1208299

PATIENT
  Age: 61 Year
  Sex: Female
  Weight: 87.62 kg

DRUGS (3)
  1. TOCILIZUMAB [Suspect]
     Indication: RHEUMATOID ARTHRITIS
     Route: 042
     Dates: start: 2010, end: 201212
  2. TOCILIZUMAB [Suspect]
     Route: 042
     Dates: start: 20121218
  3. PLAQUENIL [Concomitant]
     Indication: RHEUMATOID ARTHRITIS
     Route: 065

REACTIONS (3)
  - Pulmonary fibrosis [Fatal]
  - Respiratory failure [Fatal]
  - Pneumonia legionella [Recovered/Resolved]
